FAERS Safety Report 5332171-7 (Version None)
Quarter: 2007Q2

REPORT INFORMATION
  Report Type: 
  Country: None (occurrence: None)
  Receive Date: 20070518
  Receipt Date: 20070507
  Transmission Date: 20071010
  Serious: Yes (Other)
  Sender: FDA-Public Use
  Company Number: 233651K07USA

PATIENT
  Age: 44 Year
  Sex: Female

DRUGS (4)
  1. REBIF [Suspect]
     Indication: MULTIPLE SCLEROSIS
     Dosage: 22 MCG, 3 IN 1 WEEKS, SUBCUTANEOUS
     Route: 058
     Dates: start: 20051219
  2. NARCOTICS (ANALGESICS) [Concomitant]
  3. PILL (ORAL CONTRACEPTIVE NOS) [Concomitant]
  4. CYMBALTA [Concomitant]

REACTIONS (1)
  - INSULIN RESISTANT DIABETES [None]
